FAERS Safety Report 15835166 (Version 2)
Quarter: 2019Q3

REPORT INFORMATION
  Report Type: Spontaneous
  Country: DE (occurrence: DE)
  Receive Date: 20190116
  Receipt Date: 20190909
  Transmission Date: 20191004
  Serious: Yes (Life-Threatening, Hospitalization, Congenital Anomaly, Other)
  Sender: FDA-Public Use
  Company Number: DE-CELLTRION INC.-2019DE017756

PATIENT

DRUGS (5)
  1. VINCRISTINE [Suspect]
     Active Substance: VINCRISTINE
     Indication: DIFFUSE LARGE B-CELL LYMPHOMA
     Dosage: AS SINGLE DOSE FOR THREE CYCLES
     Route: 064
  2. PREDNISOLONE. [Suspect]
     Active Substance: PREDNISOLONE
     Indication: DIFFUSE LARGE B-CELL LYMPHOMA
     Dosage: GIVEN ON 5 CONSECUTIVE DAYS
     Route: 064
  3. DOXORUBICIN [Suspect]
     Active Substance: DOXORUBICIN
     Indication: DIFFUSE LARGE B-CELL LYMPHOMA
     Dosage: AS SINGLE DOSE FOR THREE CYCLES
     Route: 064
  4. CYCLOPHOSPHAMIDE. [Suspect]
     Active Substance: CYCLOPHOSPHAMIDE
     Indication: DIFFUSE LARGE B-CELL LYMPHOMA
     Dosage: AS SINGLE DOSE FOR THREE CYCLES
     Route: 064
  5. RITUXIMAB (UNKNOWN) [Suspect]
     Active Substance: RITUXIMAB
     Indication: DIFFUSE LARGE B-CELL LYMPHOMA
     Dosage: AS SINGLE DOSE FOR THREE CYCLES
     Route: 064

REACTIONS (6)
  - Foetal exposure during pregnancy [Recovering/Resolving]
  - Cardiotoxicity [Recovered/Resolved]
  - Heart disease congenital [Recovering/Resolving]
  - Low birth weight baby [Unknown]
  - Congestive cardiomyopathy [Recovering/Resolving]
  - Congenital cardiovascular anomaly [Recovered/Resolved]
